FAERS Safety Report 5720176-3 (Version None)
Quarter: 2008Q2

REPORT INFORMATION
  Report Type: 
  Country: None (occurrence: None)
  Receive Date: 20080428
  Receipt Date: 20070830
  Transmission Date: 20081010
  Serious: No
  Sender: FDA-Public Use
  Company Number: US-AMGEN-US241103

PATIENT
  Sex: Female

DRUGS (9)
  1. SENSIPAR [Suspect]
     Indication: HYPERPARATHYROIDISM SECONDARY
     Route: 065
     Dates: start: 20070701
  2. EPOGEN [Concomitant]
     Indication: RENAL FAILURE CHRONIC
     Route: 065
  3. ASPIRIN [Concomitant]
     Route: 065
  4. PROTONIX [Concomitant]
     Route: 065
  5. XANAX [Concomitant]
     Route: 065
  6. ATIVAN [Concomitant]
     Route: 065
  7. HECTORAL [Concomitant]
     Route: 065
  8. FOSRENOL [Concomitant]
     Route: 065
  9. FOSRENOL [Concomitant]
     Route: 065

REACTIONS (2)
  - BLOOD PHOSPHORUS ABNORMAL [None]
  - PRURITUS [None]
